FAERS Safety Report 9790740 (Version 2)
Quarter: 2014Q1

REPORT INFORMATION
  Report Type: Spontaneous
  Country: US (occurrence: US)
  Receive Date: 20131231
  Receipt Date: 20140327
  Transmission Date: 20141002
  Serious: Yes (Other)
  Sender: FDA-Public Use
  Company Number: US-PFIZER INC-2013373629

PATIENT
  Sex: 0

DRUGS (2)
  1. CELEBREX [Suspect]
     Dosage: UNK
  2. LYRICA [Suspect]
     Dosage: UNK

REACTIONS (5)
  - Pneumonia [Unknown]
  - Sinusitis [Unknown]
  - Bronchitis [Unknown]
  - Pyrexia [Unknown]
  - Malaise [Unknown]
